FAERS Safety Report 9514057 (Version 1)
Quarter: 2013Q3

REPORT INFORMATION
  Report Type: Spontaneous
  Country: FR (occurrence: FR)
  Receive Date: 20130910
  Receipt Date: 20130910
  Transmission Date: 20140515
  Serious: Yes (Other)
  Sender: FDA-Public Use
  Company Number: PHHY2013FR097349

PATIENT
  Age: 45 Year
  Sex: Female

DRUGS (2)
  1. VANCOMYCIN [Suspect]
  2. PRISTINAMYCIN [Suspect]

REACTIONS (3)
  - Drug reaction with eosinophilia and systemic symptoms [Unknown]
  - Human herpesvirus 7 infection [Unknown]
  - Epstein-Barr virus infection [Unknown]
